FAERS Safety Report 25757513 (Version 2)
Quarter: 2025Q4

REPORT INFORMATION
  Report Type: Spontaneous
  Country: US (occurrence: US)
  Receive Date: 20250903
  Receipt Date: 20251003
  Transmission Date: 20260117
  Serious: No
  Sender: PFIZER
  Company Number: US-PFIZER INC-PV202500105343

PATIENT
  Age: 41 Year
  Sex: Female

DRUGS (4)
  1. XELJANZ XR [Suspect]
     Active Substance: TOFACITINIB CITRATE
     Indication: Rheumatoid arthritis
     Dosage: 11 MG, 1X/DAY
     Route: 048
  2. XELJANZ XR [Suspect]
     Active Substance: TOFACITINIB CITRATE
     Dosage: 11 MG, 1X/DAY
     Route: 048
     Dates: start: 202508
  3. RINVOQ [Concomitant]
     Active Substance: UPADACITINIB
     Dosage: UNK (FOR 3 MONTHS)
  4. RINVOQ [Concomitant]
     Active Substance: UPADACITINIB
     Dosage: UNK (ER)
     Dates: start: 2025

REACTIONS (2)
  - Blood cholesterol increased [Unknown]
  - Nasopharyngitis [Unknown]

NARRATIVE: CASE EVENT DATE: 20250801
